FAERS Safety Report 7780200-3 (Version None)
Quarter: 2011Q3

REPORT INFORMATION
  Report Type: 
  Country: None (occurrence: None)
  Receive Date: 20110927
  Receipt Date: 20110927
  Transmission Date: 20111222
  Serious: Yes (Other)
  Sender: FDA-Public Use
  Company Number: None

PATIENT
  Age: 69 Year
  Sex: Male
  Weight: 85 kg

DRUGS (9)
  1. AMPHOTERICIN B [Suspect]
     Indication: MENINGITIS CRYPTOCOCCAL
     Dosage: 345.5MG
     Route: 040
     Dates: start: 20110912, end: 20110913
  2. AMPICILLIN SODIUM [Concomitant]
     Route: 042
  3. ACETAMINOPHEN [Concomitant]
     Route: 048
  4. ENOXAPARIN [Concomitant]
     Route: 058
  5. MEPERIDINE HCL [Concomitant]
     Route: 042
  6. ACYCLOVIR [Concomitant]
     Route: 042
  7. FLUCYTOSINE [Concomitant]
     Route: 048
  8. ASPIRIN [Concomitant]
     Route: 048
  9. CEFTRIAXONE [Concomitant]
     Route: 042

REACTIONS (1)
  - HYPOTHERMIA [None]
